FAERS Safety Report 6942018 (Version 6)
Quarter: 2012Q4

REPORT INFORMATION
  Report Type: 
  Country: CA (occurrence: CA)
  Receive Date: 20090316
  Receipt Date: 20121016
  Transmission Date: 20130627
  Serious: Yes (Hospitalization, Other)
  Sender: FDA-Public Use
  Company Number: PHMT2005CA00733

PATIENT
  Age: 59 None
  Sex: Female
  Weight: 58.96 kg

DRUGS (16)
  1. SANDOSTATIN LAR [Suspect]
     Indication: CARCINOID TUMOUR
     Dosage: 30 mg every 4 weeks
     Route: 030
     Dates: start: 20050207
  2. CHEMOTHERAPEUTICS,OTHER [Suspect]
     Dates: start: 200510, end: 20060209
  3. APO-AMITRIPTYLINE [Concomitant]
  4. ATIVAN [Concomitant]
     Dosage: 1 mg, QHS
  5. LIDOCAINE [Concomitant]
  6. LOSEC [Concomitant]
     Dosage: 20 mg, QD
  7. VITALUX [Concomitant]
     Dosage: Vitalux with lutein, BID
  8. VITAMINS [Concomitant]
     Dosage: UNK UKN, BID
  9. REFRESH TEARS PLUS [Concomitant]
     Dosage: 1 drop to right eye TID, PRN
  10. ZOPICLONE [Concomitant]
     Dosage: 7.5 mg, QHS
  11. DRUG THERAPY NOS [Concomitant]
     Dosage: Cream RX 1019740
  12. SENOKOT-S [Concomitant]
     Dosage: 1 tablet, QD
  13. DRUG THERAPY NOS [Concomitant]
     Dosage: Radiostope Indium III
     Dates: end: 20061031
  14. DRUG THERAPY NOS [Concomitant]
     Dates: start: 20070626
  15. RADIO-THERAPY [Concomitant]
     Dosage: UNK, every 6 months
     Dates: start: 200706
  16. BIAXIN [Concomitant]
     Dosage: 500 mg, BID

REACTIONS (40)
  - Hepatomegaly [Unknown]
  - Cholecystitis [Unknown]
  - Flank pain [Recovering/Resolving]
  - Faeces discoloured [Unknown]
  - Abdominal pain [Unknown]
  - Abdominal distension [Unknown]
  - Nausea [Unknown]
  - Asthenia [Unknown]
  - Pyrexia [Unknown]
  - Pain [Not Recovered/Not Resolved]
  - Urinary tract infection [Recovered/Resolved]
  - Malignant neoplasm progression [Unknown]
  - Carcinoid tumour [Unknown]
  - Metastases to liver [Not Recovered/Not Resolved]
  - Haemoglobin decreased [Recovering/Resolving]
  - Blood pressure decreased [Unknown]
  - Pyelonephritis [Recovering/Resolving]
  - Kidney infection [Unknown]
  - Pollakiuria [Recovered/Resolved]
  - Polydipsia [Recovered/Resolved]
  - Cystitis [Unknown]
  - Syncope [Unknown]
  - Macular degeneration [Not Recovered/Not Resolved]
  - Melanocytic naevus [Unknown]
  - Necrosis [Not Recovered/Not Resolved]
  - Fatigue [Unknown]
  - Jaundice [Unknown]
  - Blood bilirubin increased [Unknown]
  - Oedema peripheral [Unknown]
  - Injection site oedema [Unknown]
  - Blood glucose increased [Unknown]
  - Mass [Not Recovered/Not Resolved]
  - Eye irritation [Unknown]
  - Sleep disorder [Recovering/Resolving]
  - Arthralgia [Unknown]
  - Musculoskeletal pain [Unknown]
  - Influenza [Unknown]
  - Back pain [Unknown]
  - Hepatic enzyme increased [Unknown]
  - Weight decreased [Unknown]
